FAERS Safety Report 5725431-9 (Version None)
Quarter: 2008Q2

REPORT INFORMATION
  Report Type: 
  Country: None (occurrence: None)
  Receive Date: 20080501
  Receipt Date: 20080422
  Transmission Date: 20081010
  Serious: Yes (Hospitalization)
  Sender: FDA-Public Use
  Company Number: FR-ASTRAZENECA-2008CG00625

PATIENT
  Age: 55 Year
  Sex: Male

DRUGS (7)
  1. DIPRIVAN [Suspect]
     Indication: ANAESTHESIA
     Route: 042
     Dates: start: 20071212, end: 20071212
  2. KETOPROFEN [Suspect]
     Indication: ANAESTHESIA
     Route: 048
     Dates: start: 20071212
  3. CEFAMANDOLE [Suspect]
     Indication: ANAESTHESIA
     Dates: start: 20071212, end: 20071212
  4. HYPNOVEL [Suspect]
     Indication: INDUCTION OF ANAESTHESIA
     Route: 042
     Dates: start: 20071211, end: 20071212
  5. ISOFLURANE [Suspect]
     Indication: ANAESTHESIA
     Dates: start: 20071212, end: 20071212
  6. NIMBEX [Suspect]
     Indication: ANAESTHESIA
     Route: 042
     Dates: start: 20071212, end: 20071212
  7. SUFENTA [Suspect]
     Indication: ANAESTHESIA
     Route: 042
     Dates: start: 20071212, end: 20071212

REACTIONS (1)
  - THROMBOTIC THROMBOCYTOPENIC PURPURA [None]
